FAERS Safety Report 21202947 (Version 1)
Quarter: 2022Q3

REPORT INFORMATION
  Report Type: Report from Study
  Country: BE (occurrence: None)
  Receive Date: 20220811
  Receipt Date: 20220811
  Transmission Date: 20221027
  Serious: Yes (Hospitalization)
  Sender: FDA-Public Use
  Company Number: BE-Merck Healthcare KGaA-9341575

PATIENT
  Age: 74 Year
  Sex: Male

DRUGS (2)
  1. BAVENCIO [Suspect]
     Active Substance: AVELUMAB
     Indication: Renal cell carcinoma
  2. INLYTA [Suspect]
     Active Substance: AXITINIB
     Indication: Renal cell carcinoma

REACTIONS (1)
  - Polymyalgia rheumatica [Recovered/Resolved]

NARRATIVE: CASE EVENT DATE: 20220724
